FAERS Safety Report 5624988-6 (Version None)
Quarter: 2008Q1

REPORT INFORMATION
  Report Type: 
  Country: None (occurrence: None)
  Receive Date: 20080213
  Receipt Date: 20080201
  Transmission Date: 20080703
  Serious: Yes (Other)
  Sender: FDA-Public Use
  Company Number: US-PFIZER INC-2007063719

PATIENT
  Sex: Male
  Weight: 56.363 kg

DRUGS (8)
  1. CHANTIX [Suspect]
     Indication: SMOKING CESSATION THERAPY
  2. DEPAKOTE [Concomitant]
  3. SEROQUEL [Concomitant]
  4. ZYPREXA [Concomitant]
  5. ABILIFY [Concomitant]
  6. TRILEPTAL [Concomitant]
  7. UNITHROID [Concomitant]
  8. TOPAMAX [Concomitant]

REACTIONS (6)
  - CONVULSION [None]
  - DECREASED APPETITE [None]
  - MOVEMENT DISORDER [None]
  - NAUSEA [None]
  - STRESS [None]
  - WEIGHT DECREASED [None]
